FAERS Safety Report 20059403 (Version 1)
Quarter: 2021Q4

REPORT INFORMATION
  Report Type: Spontaneous
  Country: CA (occurrence: CA)
  Receive Date: 20211111
  Receipt Date: 20211111
  Transmission Date: 20220303
  Serious: Yes (Hospitalization, Other)
  Sender: FDA-Public Use
  Company Number: CA-SAMSUNG BIOEPIS-SB-2021-25950

PATIENT
  Age: 33 Year
  Sex: Female
  Weight: 76 kg

DRUGS (2)
  1. INFLIXIMAB [Suspect]
     Active Substance: INFLIXIMAB
     Indication: Colitis ulcerative
     Route: 042
  2. PREDNISONE [Concomitant]
     Active Substance: PREDNISONE
     Indication: Product used for unknown indication
     Route: 048

REACTIONS (11)
  - Chest pain [Unknown]
  - Colitis ulcerative [Unknown]
  - Fatigue [Unknown]
  - Feeling cold [Unknown]
  - Infusion related reaction [Unknown]
  - Palpitations [Unknown]
  - Tremor [Unknown]
  - Weight decreased [Unknown]
  - Drug ineffective [Unknown]
  - Inappropriate schedule of product administration [Unknown]
  - Off label use [Unknown]
